FAERS Safety Report 5289195-8 (Version None)
Quarter: 2007Q1

REPORT INFORMATION
  Report Type: 
  Country: None (occurrence: None)
  Receive Date: 20070124
  Receipt Date: 20051215
  Transmission Date: 20070707
  Serious: No
  Sender: FDA-Public Use
  Company Number: A001-002-006726

PATIENT
  Sex: Female

DRUGS (3)
  1. ARICEPT [Suspect]
     Indication: DEMENTIA
     Dosage: ORAL
     Route: 048
     Dates: start: 20051001
  2. ARICEPT [Suspect]
     Indication: MENTAL RETARDATION SEVERITY UNSPECIFIED
     Dosage: ORAL
     Route: 048
     Dates: start: 20051001
  3. RISPERDAL [Concomitant]

REACTIONS (2)
  - CONVULSION [None]
  - HALLUCINATION [None]
